FAERS Safety Report 13961411 (Version 3)
Quarter: 2017Q4

REPORT INFORMATION
  Report Type: Report from Study
  Country: US (occurrence: US)
  Receive Date: 20170912
  Receipt Date: 20171023
  Transmission Date: 20180320
  Serious: Yes (Hospitalization, Other)
  Sender: FDA-Public Use
  Company Number: US-AMGEN-USASL2017136752

PATIENT
  Age: 81 Year
  Sex: Male
  Weight: 89.4 kg

DRUGS (18)
  1. DITROPAN [Concomitant]
     Active Substance: OXYBUTYNIN CHLORIDE
     Dosage: 10 MG, TID
     Route: 048
  2. ATIVAN [Concomitant]
     Active Substance: LORAZEPAM
     Dosage: 0.5 MG, TID (AS NEEDED)
     Route: 048
  3. ENBREL [Suspect]
     Active Substance: ETANERCEPT
     Indication: PRODUCT USED FOR UNKNOWN INDICATION
     Dosage: UNK UNK, QWK
     Route: 065
  4. MEDROL [Concomitant]
     Active Substance: METHYLPREDNISOLONE
     Dosage: 4 MG, QD
     Route: 048
  5. PROAIR HFA [Concomitant]
     Active Substance: ALBUTEROL SULFATE
     Dosage: 90 MUG, QID (2 PUFFS INHALED BY MOUTH EVERY 6 HOURS)
  6. SYMBICORT [Concomitant]
     Active Substance: BUDESONIDE\FORMOTEROL FUMARATE DIHYDRATE
     Dosage: UNK UNK, BID (160-4.5 MCG 2 PUFFS INHALED BY MOUTH)
  7. AVELOX [Concomitant]
     Active Substance: MOXIFLOXACIN HYDROCHLORIDE
     Indication: NEUTROPHIL TOXIC GRANULATION PRESENT
     Dosage: UNK
  8. SEPTRA DS [Concomitant]
     Active Substance: SULFAMETHOXAZOLE\TRIMETHOPRIM
     Dosage: 800 MG, BID
     Route: 048
  9. NORCO [Concomitant]
     Active Substance: ACETAMINOPHEN\HYDROCODONE BITARTRATE
     Dosage: UNK (5-325 MG 1-2 TABLETS EVERY 4 HOURS AS NEEDED)
     Route: 048
  10. NEURONTIN [Concomitant]
     Active Substance: GABAPENTIN
     Dosage: 300 MG, UNK (1 TAB IN MORNING, 1 AFTER LUNCH AND 3 AT BEDTIME)
     Route: 048
  11. BACTRIM [Concomitant]
     Active Substance: SULFAMETHOXAZOLE\TRIMETHOPRIM
     Dosage: 160 MG, BID
     Route: 048
  12. ZITHROMAX [Concomitant]
     Active Substance: AZITHROMYCIN DIHYDRATE
     Dosage: 250 MG, UNK (2 TABLETS ONE DAY AND 1 TAB DAILY FOR 4 DAYS)
     Route: 048
  13. FLOMAX [Concomitant]
     Active Substance: TAMSULOSIN HYDROCHLORIDE
     Dosage: 0.4 MG, QD
     Route: 048
  14. LIPITOR [Concomitant]
     Active Substance: ATORVASTATIN CALCIUM
     Dosage: 20 MG, QD
     Route: 048
  15. PYRIDIUM [Concomitant]
     Active Substance: PHENAZOPYRIDINE
     Dosage: 200 MG, TID
     Route: 048
  16. BABY ASPIRIN [Concomitant]
     Active Substance: ASPIRIN
     Dosage: UNK
  17. NEURONTIN [Concomitant]
     Active Substance: GABAPENTIN
     Dosage: 1200 MG, QD
     Route: 048
  18. COMBIVENT RESPIMAT [Concomitant]
     Active Substance: ALBUTEROL SULFATE\IPRATROPIUM BROMIDE
     Dosage: UNK UNK, QID (20-100 MCG/ ACTUTAION)

REACTIONS (21)
  - Acute kidney injury [Unknown]
  - Chest pain [Recovering/Resolving]
  - Fall [Unknown]
  - Hypoxia [Not Recovered/Not Resolved]
  - Bundle branch block left [Unknown]
  - Anaemia [Unknown]
  - Contusion [Unknown]
  - Hyperkalaemia [Unknown]
  - Peripheral swelling [Unknown]
  - Angina pectoris [Unknown]
  - Adverse reaction [Unknown]
  - Bronchial secretion retention [Unknown]
  - Breath sounds abnormal [Unknown]
  - Oedema peripheral [Unknown]
  - Unevaluable event [Unknown]
  - Pain in extremity [Unknown]
  - Urinary tract infection [Unknown]
  - Dyspnoea [Unknown]
  - Pollakiuria [Unknown]
  - Erythema [Unknown]
  - Fibula fracture [Unknown]

NARRATIVE: CASE EVENT DATE: 20170712
